FAERS Safety Report 9889426 (Version 1)
Quarter: 2014Q1

REPORT INFORMATION
  Report Type: Spontaneous
  Country: BR (occurrence: BR)
  Receive Date: 20140211
  Receipt Date: 20140211
  Transmission Date: 20141002
  Serious: Yes (Hospitalization)
  Sender: FDA-Public Use
  Company Number: PHHY2014BR013541

PATIENT
  Age: 45 Year
  Sex: Female

DRUGS (5)
  1. RIFAMPICIN [Suspect]
     Indication: ERYTHEMA INDURATUM
     Dosage: UNK
  2. ISONIAZID [Suspect]
     Indication: ERYTHEMA INDURATUM
  3. PYRAZINAMIDE [Suspect]
     Indication: ERYTHEMA INDURATUM
  4. NPH INSULIN [Concomitant]
  5. ENALAPRIL [Concomitant]

REACTIONS (6)
  - Addison^s disease [Recovered/Resolved]
  - Skin hyperpigmentation [Recovered/Resolved]
  - Asthenia [Recovered/Resolved]
  - Dizziness [Recovered/Resolved]
  - Hyponatraemia [Recovered/Resolved]
  - Depression [Recovered/Resolved]
